FAERS Safety Report 12006300 (Version 2)
Quarter: 2016Q1

REPORT INFORMATION
  Report Type: Spontaneous
  Country: US (occurrence: US)
  Receive Date: 20160205
  Receipt Date: 20160210
  Transmission Date: 20160526
  Serious: Yes (Death)
  Sender: FDA-Public Use
  Company Number: US-CIPLA LTD.-2016US00988

PATIENT

DRUGS (4)
  1. DIPHENHYDRAMINE. [Suspect]
     Active Substance: DIPHENHYDRAMINE
     Route: 065
  2. FLUORIDE [Suspect]
     Active Substance: SODIUM FLUORIDE
     Route: 065
  3. TOPIRAMATE. [Suspect]
     Active Substance: TOPIRAMATE
     Dosage: UNK
     Route: 065
  4. QUETIAPINE [Suspect]
     Active Substance: QUETIAPINE
     Route: 065

REACTIONS (2)
  - Completed suicide [Fatal]
  - Toxicity to various agents [Fatal]
